FAERS Safety Report 7988388-6 (Version None)
Quarter: 2011Q4

REPORT INFORMATION
  Report Type: 
  Country: None (occurrence: None)
  Receive Date: 20111216
  Receipt Date: 20111213
  Transmission Date: 20120403
  Serious: Yes (Life-Threatening, Hospitalization)
  Sender: FDA-Public Use
  Company Number: US-US-EMD SERONO, INC.-7080273

PATIENT
  Sex: Female

DRUGS (8)
  1. REBIF [Suspect]
     Indication: RELAPSING-REMITTING MULTIPLE SCLEROSIS
     Route: 058
     Dates: start: 20110613, end: 20110920
  2. MORPHINE [Concomitant]
     Indication: TRIGEMINAL NEURALGIA
  3. WELLBUTRIN [Concomitant]
     Indication: DEPRESSION
  4. MEDICATIONS FOR TRIGMINAL NEURALGIA [Concomitant]
     Indication: TRIGEMINAL NEURALGIA
  5. REBIF [Suspect]
     Route: 058
     Dates: start: 20110920, end: 20111004
  6. HIGHBLOOD PRESSURE MEDICATIONS [Concomitant]
     Indication: HYPERTENSION
  7. METOPROLOL TARTRATE [Concomitant]
     Indication: HYPERTENSION
  8. ZOFRAN [Concomitant]
     Indication: NAUSEA

REACTIONS (10)
  - ELECTROLYTE IMBALANCE [None]
  - INJECTION SITE PAIN [None]
  - RESPIRATORY FAILURE [None]
  - CLOSTRIDIAL INFECTION [None]
  - URINE COLOUR ABNORMAL [None]
  - INJECTION SITE HAEMATOMA [None]
  - DIVERTICULITIS [None]
  - MYOCARDIAL INFARCTION [None]
  - WEIGHT DECREASED [None]
  - COMA [None]
